FAERS Safety Report 12296395 (Version 4)
Quarter: 2016Q2

REPORT INFORMATION
  Report Type: Spontaneous
  Country: FI (occurrence: FI)
  Receive Date: 20160422
  Receipt Date: 20160524
  Transmission Date: 20160815
  Serious: Yes (Life-Threatening, Hospitalization, Other)
  Sender: FDA-Public Use
  Company Number: FI-ASTRAZENECA-2016SE41769

PATIENT
  Age: 18537 Day
  Sex: Male

DRUGS (8)
  1. AMLODIPIN ORION [Concomitant]
     Indication: HYPERTENSION
     Route: 048
  2. THYROXIN [Concomitant]
     Active Substance: LEVOTHYROXINE
     Indication: HYPOTHYROIDISM
     Dosage: 50 UG, DAILY, 1/2 (OF 100 MG TABLET) ONCE A DAY
     Route: 048
  3. XIGDUO XR [Suspect]
     Active Substance: DAPAGLIFLOZIN PROPANEDIOL\METFORMIN HYDROCHLORIDE
     Indication: TYPE 2 DIABETES MELLITUS
     Dosage: 5/1000 MG TWICE A DAY
     Route: 048
     Dates: start: 20160331, end: 20160414
  4. JANUVIA [Concomitant]
     Active Substance: SITAGLIPTIN PHOSPHATE
     Indication: DIABETES MELLITUS
     Route: 048
  5. OPAMOX [Concomitant]
     Dosage: 1/2-1 TABLET 1-2 TIMES A DAY (1 TABLET = 15MG OXAZEPAMUM)
     Route: 048
  6. ALLONOL [Concomitant]
     Active Substance: ALLOPURINOL
     Indication: GOUT
     Route: 048
  7. PRIMASPAN [Concomitant]
     Active Substance: ASPIRIN
  8. LESCOL DEPOT [Concomitant]
     Active Substance: FLUVASTATIN SODIUM
     Indication: HYPERCHOLESTEROLAEMIA
     Route: 048

REACTIONS (12)
  - Hypercalcaemia [Recovered/Resolved]
  - Hypernatraemia [Recovered/Resolved]
  - Fall [Unknown]
  - Hyperchloraemia [Recovered/Resolved]
  - Dysphagia [Recovered/Resolved]
  - Subdural haematoma [Unknown]
  - Urine output increased [Unknown]
  - Blood creatinine increased [Recovered/Resolved]
  - Ketoacidosis [Recovered/Resolved]
  - Gait disturbance [Unknown]
  - Dehydration [Recovered/Resolved]
  - Head injury [Unknown]

NARRATIVE: CASE EVENT DATE: 20160414
